FAERS Safety Report 5194592-5 (Version None)
Quarter: 2006Q4

REPORT INFORMATION
  Report Type: 
  Country: None (occurrence: None)
  Receive Date: 20061229
  Receipt Date: 20061220
  Transmission Date: 20070319
  Serious: Yes (Hospitalization, Other)
  Sender: FDA-Public Use
  Company Number: ES-JNJFOC-20061103727

PATIENT
  Age: 38 Year
  Sex: Male
  Weight: 68 kg

DRUGS (4)
  1. REMICADE [Suspect]
     Indication: ANKYLOSING SPONDYLITIS
     Dosage: 16 INFUSIONS
     Route: 042
  2. ARAVA [Concomitant]
     Route: 065
  3. URBASON [Concomitant]
     Route: 065
  4. IBUPROFEN [Concomitant]
     Dosage: TOTAL DAILY DOSE: 600MG-1200MG.
     Route: 065

REACTIONS (2)
  - ASCITES [None]
  - PERITONEAL TUBERCULOSIS [None]
